FAERS Safety Report 22229593 (Version 1)
Quarter: 2023Q2

REPORT INFORMATION
  Report Type: Spontaneous
  Country: US (occurrence: None)
  Receive Date: 20230418
  Receipt Date: 20230418
  Transmission Date: 20230722
  Serious: Yes (Life-Threatening)
  Sender: FDA-Public Use
  Company Number: None

PATIENT
  Age: 78 Year
  Sex: Female
  Weight: 68.04 kg

DRUGS (22)
  1. PAXLOVID [Suspect]
     Active Substance: NIRMATRELVIR\RITONAVIR
  2. BUPROPION [Concomitant]
     Active Substance: BUPROPION
  3. SYNTHROID [Concomitant]
     Active Substance: LEVOTHYROXINE SODIUM
  4. LISINOPRIL [Concomitant]
     Active Substance: LISINOPRIL
  5. CLONIDINE [Concomitant]
     Active Substance: CLONIDINE
  6. TYLENOL PM [Concomitant]
     Active Substance: ACETAMINOPHEN\DIPHENHYDRAMINE
  7. GLUCOSAMINE/CHONDROITIN [Concomitant]
  8. MELATONIN [Concomitant]
     Active Substance: MELATONIN
  9. APPLE CIDER VINEGAR [Concomitant]
     Active Substance: APPLE CIDER VINEGAR
  10. CRANBERRY [Concomitant]
     Active Substance: CRANBERRY
  11. TUMERIC/CURCUMIN [Concomitant]
  12. COENZYME Q10 [Concomitant]
     Active Substance: DIETARY SUPPLEMENT\UBIDECARENONE
  13. PROBIOTICS NOS [Concomitant]
     Active Substance: PROBIOTICS NOS
  14. VITAMIN B12 [Concomitant]
     Active Substance: CYANOCOBALAMIN
  15. MINERALS\VITAMINS [Concomitant]
     Active Substance: MINERALS\VITAMINS
  16. DIETARY SUPPLEMENT [Concomitant]
     Active Substance: DIETARY SUPPLEMENT
  17. POTASSIUM [Concomitant]
     Active Substance: POTASSIUM
  18. GINKGO [Concomitant]
     Active Substance: GINKGO
  19. ADULT MULTIVITE [Concomitant]
  20. VITAMIN D3 [Concomitant]
     Active Substance: CHOLECALCIFEROL
  21. CALCIUM [Concomitant]
     Active Substance: CALCIUM
  22. NIACIN [Concomitant]
     Active Substance: NIACIN

REACTIONS (1)
  - Diarrhoea [None]
